FAERS Safety Report 16613979 (Version 2)
Quarter: 2019Q3

REPORT INFORMATION
  Report Type: Spontaneous
  Country: GB (occurrence: GB)
  Receive Date: 20190723
  Receipt Date: 20190830
  Transmission Date: 20191004
  Serious: Yes (Other)
  Sender: FDA-Public Use
  Company Number: GB-ROCHE-2357530

PATIENT
  Age: 45 Year
  Sex: Female

DRUGS (6)
  1. PYRIDOXINE [Concomitant]
     Active Substance: PYRIDOXINE
     Indication: LYMPH NODE TUBERCULOSIS
  2. ISONIAZID. [Concomitant]
     Active Substance: ISONIAZID
     Indication: LYMPH NODE TUBERCULOSIS
  3. PREDNISOLONE. [Suspect]
     Active Substance: PREDNISOLONE
     Indication: IGA NEPHROPATHY
     Route: 065
  4. MOXIFLOXACIN. [Concomitant]
     Active Substance: MOXIFLOXACIN
     Indication: LYMPH NODE TUBERCULOSIS
  5. GLICLAZIDE [Concomitant]
     Active Substance: GLICLAZIDE
     Indication: TYPE 2 DIABETES MELLITUS
  6. MYCOPHENOLATE MOFETIL. [Suspect]
     Active Substance: MYCOPHENOLATE MOFETIL
     Indication: IGA NEPHROPATHY
     Route: 065

REACTIONS (2)
  - Trichophytic granuloma [Recovered/Resolved]
  - Trichophytosis [Recovered/Resolved]
